FAERS Safety Report 25188343 (Version 1)
Quarter: 2025Q2

REPORT INFORMATION
  Report Type: Spontaneous
  Country: US (occurrence: US)
  Receive Date: 20250411
  Receipt Date: 20250411
  Transmission Date: 20250716
  Serious: No
  Sender: BLUEPRINT MEDICINES
  Company Number: US-Blueprint Medicines Corporation-2025-AER-00708

PATIENT
  Age: 71 Year
  Sex: Male

DRUGS (1)
  1. AYVAKIT [Suspect]
     Active Substance: AVAPRITINIB
     Indication: Haematopoietic neoplasm
     Route: 065
     Dates: start: 20250320, end: 20250404

REACTIONS (9)
  - Influenza like illness [Unknown]
  - Headache [Unknown]
  - Abdominal discomfort [Unknown]
  - Diarrhoea [Unknown]
  - Decreased appetite [Unknown]
  - Anxiety [Unknown]
  - Muscle tightness [Unknown]
  - Discomfort [Unknown]
  - Drug hypersensitivity [Unknown]
